FAERS Safety Report 5123031-5 (Version None)
Quarter: 2006Q4

REPORT INFORMATION
  Report Type: 
  Country: None (occurrence: None)
  Receive Date: 20061005
  Receipt Date: 20060919
  Transmission Date: 20070319
  Serious: Yes (Hospitalization)
  Sender: FDA-Public Use
  Company Number: DSA_81694_2006

PATIENT
  Age: 54 Year
  Sex: Female

DRUGS (11)
  1. XYREM [Suspect]
     Indication: SLEEP DISORDER
     Dosage: 4G TWICE NIGHTLY PO
     Route: 048
     Dates: start: 20060124
  2. XYREM [Suspect]
     Indication: SLEEP DISORDER
     Dosage: 3 G TWICE NIGHTLY PO
     Route: 048
     Dates: start: 20060118, end: 20060123
  3. VALIUM [Concomitant]
  4. EFFEXOR [Concomitant]
  5. COMPAZINE [Concomitant]
  6. ZYRTEC [Concomitant]
  7. FOLIC ACID [Concomitant]
  8. FUROSET [Concomitant]
  9. DALMANE [Concomitant]
  10. DETROL LA [Concomitant]
  11. CALCIUM CARBONATE [Concomitant]

REACTIONS (1)
  - LOSS OF CONSCIOUSNESS [None]
